FAERS Safety Report 7411432-1 (Version None)
Quarter: 2011Q2

REPORT INFORMATION
  Report Type: 
  Country: None (occurrence: None)
  Receive Date: 20110413
  Receipt Date: 20100806
  Transmission Date: 20111010
  Serious: Yes (Other)
  Sender: FDA-Public Use
  Company Number: US-BRISTOL-MYERS SQUIBB COMPANY-15230204

PATIENT
  Sex: Female

DRUGS (2)
  1. RADIATION THERAPY [Suspect]
     Indication: HEAD AND NECK CANCER
  2. ERBITUX [Suspect]
     Indication: HEAD AND NECK CANCER
     Route: 042
     Dates: start: 20090910

REACTIONS (2)
  - WEIGHT DECREASED [None]
  - RASH [None]
